FAERS Safety Report 9554337 (Version 1)
Quarter: 2013Q3

REPORT INFORMATION
  Report Type: Spontaneous
  Country: GB (occurrence: None)
  Receive Date: 20130726
  Receipt Date: 20130726
  Transmission Date: 20140515
  Serious: Yes (Hospitalization)
  Sender: FDA-Public Use
  Company Number: 2013-01176

PATIENT
  Age: 36 Year
  Sex: Male

DRUGS (3)
  1. QUETIAPINE (UNKNOWN) [Suspect]
     Indication: DEPRESSION
     Dosage: UNKNOWN (50 MG, AT NIGHT), UNKNOWN
     Dates: start: 200905
  2. VENLAFAXINE [Suspect]
     Indication: DEPRESSION
     Dates: start: 200902
  3. LEVOTHYROXINE [Concomitant]

REACTIONS (1)
  - Neuroleptic malignant syndrome [None]
